FAERS Safety Report 14800278 (Version 1)
Quarter: 2018Q2

REPORT INFORMATION
  Report Type: Spontaneous
  Country: US (occurrence: US)
  Receive Date: 20180416
  Receipt Date: 20180416
  Transmission Date: 20180711
  Serious: Yes (Death)
  Sender: FDA-Public Use
  Company Number: None

PATIENT
  Age: 71 Year
  Sex: Male

DRUGS (23)
  1. ESBRIET [Suspect]
     Active Substance: PIRFENIDONE
     Indication: INTERSTITIAL LUNG DISEASE
     Route: 048
     Dates: start: 20161104, end: 201804
  2. ALEVE [Concomitant]
     Active Substance: NAPROXEN SODIUM
  3. B-6 [Concomitant]
  4. BENZONATATE. [Concomitant]
     Active Substance: BENZONATATE
  5. BISOPROL FUM [Concomitant]
     Active Substance: BISOPROLOL FUMARATE
  6. FINASTERIDE. [Concomitant]
     Active Substance: FINASTERIDE
  7. AMLODIPINE [Concomitant]
     Active Substance: AMLODIPINE BESYLATE
  8. BENADRYL ALG [Concomitant]
  9. IRBESARTAN. [Concomitant]
     Active Substance: IRBESARTAN
  10. TERAZOSIN [Concomitant]
     Active Substance: TERAZOSIN\TERAZOSIN HYDROCHLORIDE
  11. ALLERGY RELF [Concomitant]
  12. ALLOPURINOL. [Concomitant]
     Active Substance: ALLOPURINOL
  13. LOPERAMIDE [Concomitant]
     Active Substance: LOPERAMIDE
  14. MULTIVITAMIN [Concomitant]
     Active Substance: VITAMINS
  15. NORTRIPTYLINE [Concomitant]
     Active Substance: NORTRIPTYLINE
  16. SIMVASTATIN. [Concomitant]
     Active Substance: SIMVASTATIN
  17. CHLORTHALID [Concomitant]
  18. VITAMIN D3 [Concomitant]
     Active Substance: CHOLECALCIFEROL
  19. OMEGA 3 KRILL [Concomitant]
  20. SERTRALINE [Concomitant]
     Active Substance: SERTRALINE HYDROCHLORIDE
  21. ASPIRIN 81MG [Concomitant]
     Active Substance: ASPIRIN
  22. GLIPIXIDE XL [Concomitant]
  23. METFORMIN [Concomitant]
     Active Substance: METFORMIN HYDROCHLORIDE

REACTIONS (1)
  - Death [None]

NARRATIVE: CASE EVENT DATE: 201804
